FAERS Safety Report 11422099 (Version 1)
Quarter: 2015Q3

REPORT INFORMATION
  Report Type: Spontaneous
  Country: US (occurrence: US)
  Receive Date: 20150827
  Receipt Date: 20150827
  Transmission Date: 20151125
  Serious: Yes (Hospitalization)
  Sender: FDA-Public Use
  Company Number: US-ACCORD-033321

PATIENT
  Age: 17 Year
  Sex: Male

DRUGS (1)
  1. TACROLIMUS. [Suspect]
     Active Substance: TACROLIMUS
     Indication: NEPHROTIC SYNDROME

REACTIONS (4)
  - Megakaryocytes abnormal [Recovered/Resolved]
  - Erythropoiesis abnormal [Recovered/Resolved]
  - Myelofibrosis [Recovered/Resolved]
  - Pancytopenia [Recovered/Resolved]
